FAERS Safety Report 4942968-0 (Version None)
Quarter: 2006Q1

REPORT INFORMATION
  Report Type: 
  Country: None (occurrence: None)
  Receive Date: 20060314
  Receipt Date: 20050919
  Transmission Date: 20060701
  Serious: Yes (Hospitalization, Other)
  Sender: FDA-Public Use
  Company Number: US-GLAXOSMITHKLINE-A0574817A

PATIENT
  Age: 70 Year
  Sex: Female
  Weight: 84.5 kg

DRUGS (8)
  1. AVANDIA [Suspect]
     Dosage: 4MG PER DAY
     Route: 048
  2. LIPITOR [Concomitant]
  3. LASIX [Concomitant]
     Indication: HYPERTENSION
  4. ASPIRIN [Concomitant]
     Indication: CORONARY ARTERY DISEASE
  5. AVAPRO [Concomitant]
     Indication: HYPERTENSION
     Dosage: 300MG CUMULATIVE DOSE
  6. PLAVIX [Concomitant]
  7. METOCLOPRAMIDE [Concomitant]
     Dosage: 5MG FOUR TIMES PER DAY
  8. ACTONEL [Concomitant]
     Indication: OSTEOPENIA

REACTIONS (12)
  - ANAEMIA [None]
  - ANXIETY [None]
  - CARDIAC FAILURE CONGESTIVE [None]
  - CHEST DISCOMFORT [None]
  - CORONARY ANGIOPLASTY [None]
  - DYSPNOEA [None]
  - FATIGUE [None]
  - HIATUS HERNIA [None]
  - ILL-DEFINED DISORDER [None]
  - OEDEMA PERIPHERAL [None]
  - RED BLOOD CELL COUNT DECREASED [None]
  - WEIGHT INCREASED [None]
